FAERS Safety Report 4726786-4 (Version None)
Quarter: 2005Q3

REPORT INFORMATION
  Report Type: 
  Country: None (occurrence: None)
  Receive Date: 20050725
  Receipt Date: 20050425
  Transmission Date: 20060218
  Serious: No
  Sender: FDA-Public Use
  Company Number: USA050496494

PATIENT
  Age: 19 Year
  Sex: Male

DRUGS (2)
  1. STRATTERA [Suspect]
     Indication: ATTENTION DEFICIT/HYPERACTIVITY DISORDER
     Dosage: 50 MG
     Dates: start: 20050201
  2. ANTIBIOTIC [Concomitant]

REACTIONS (1)
  - DISTURBANCE IN ATTENTION [None]
